FAERS Safety Report 10579348 (Version 1)
Quarter: 2014Q4

REPORT INFORMATION
  Report Type: Spontaneous
  Country: US (occurrence: US)
  Receive Date: 20141112
  Receipt Date: 20141112
  Transmission Date: 20150529
  Serious: Yes (Hospitalization)
  Sender: FDA-Public Use
  Company Number: US-BRISTOL-MYERS SQUIBB COMPANY-21564547

PATIENT
  Age: 51 Year
  Sex: Male
  Weight: 73.42 kg

DRUGS (4)
  1. SPRYCEL [Suspect]
     Active Substance: DASATINIB
     Indication: CHRONIC MYELOID LEUKAEMIA
     Dosage: RECENT DOSE ON 20OCT14
     Route: 048
  2. TRILEPTAL [Concomitant]
     Active Substance: OXCARBAZEPINE
  3. LEVOTHYROXINE [Concomitant]
     Active Substance: LEVOTHYROXINE
  4. DIVALPROEX [Concomitant]
     Active Substance: DIVALPROEX SODIUM

REACTIONS (11)
  - Respiratory failure [Unknown]
  - Weight decreased [Unknown]
  - Fluid retention [Unknown]
  - Rash [Recovered/Resolved]
  - Haemoglobin decreased [Unknown]
  - Pulmonary hypertension [Unknown]
  - Right ventricular failure [Unknown]
  - Acute kidney injury [Recovered/Resolved]
  - Rectal haemorrhage [Unknown]
  - Pleural effusion [Unknown]
  - Thrombocytopenia [Unknown]

NARRATIVE: CASE EVENT DATE: 2013
